FAERS Safety Report 7089983-1 (Version None)
Quarter: 2010Q4

REPORT INFORMATION
  Report Type: 
  Country: None (occurrence: None)
  Receive Date: 20101109
  Receipt Date: 20101029
  Transmission Date: 20110411
  Serious: Yes (Hospitalization)
  Sender: FDA-Public Use
  Company Number: DE-BIOGENIDEC-2010BI038161

PATIENT
  Age: 38 Year
  Sex: Female
  Weight: 68 kg

DRUGS (3)
  1. TYSABRI [Suspect]
     Indication: MULTIPLE SCLEROSIS
     Route: 042
     Dates: start: 20080402, end: 20100527
  2. VENLAFAXIN [Concomitant]
     Indication: DEPRESSION
  3. OXYCODON [Concomitant]
     Indication: PAIN

REACTIONS (2)
  - ECZEMA [None]
  - URTICARIA [None]
